FAERS Safety Report 5825772-0 (Version None)
Quarter: 2008Q3

REPORT INFORMATION
  Report Type: 
  Country: None (occurrence: None)
  Receive Date: 20080723
  Receipt Date: 20080714
  Transmission Date: 20090109
  Serious: Yes (Other)
  Sender: FDA-Public Use
  Company Number: JHP200800190

PATIENT
  Age: 27 Year
  Sex: Female
  Weight: 62.3 kg

DRUGS (13)
  1. PITOCIN [Suspect]
     Indication: POSTPARTUM HAEMORRHAGE
     Dosage: 40 UNITS IN 1 L NORMAL SALINE, RAPID INFUSION, INTRAVENOUS
     Route: 042
  2. METHYLDOPA [Concomitant]
  3. VITAMIN TAB [Concomitant]
  4. MAGNESIUM SULFATE [Concomitant]
  5. SODIUM CITRATE [Concomitant]
  6. METOCLOPRAMIDE [Concomitant]
  7. FAMOTIDINE [Concomitant]
  8. MIDAZOLAM HCL [Concomitant]
  9. BUPIVACAINE [Concomitant]
  10. FENTANYL [Concomitant]
  11. MORPHINE [Concomitant]
  12. NICARDIPINE (NICARDIPINE) [Concomitant]
  13. SODIUM CHLORIDE [Concomitant]

REACTIONS (4)
  - CARDIAC OUTPUT INCREASED [None]
  - HYPOTENSION [None]
  - POSTPARTUM HAEMORRHAGE [None]
  - VASCULAR RESISTANCE SYSTEMIC DECREASED [None]
